FAERS Safety Report 15315533 (Version 2)
Quarter: 2018Q4

REPORT INFORMATION
  Report Type: Report from Study
  Country: IT (occurrence: IT)
  Receive Date: 20180824
  Receipt Date: 20180904
  Transmission Date: 20190204
  Serious: Yes (Hospitalization)
  Sender: FDA-Public Use
  Company Number: IT-PFIZER INC-2018341506

PATIENT
  Age: 54 Year
  Sex: Female

DRUGS (5)
  1. MEROPENEM. [Suspect]
     Active Substance: MEROPENEM
     Indication: KLEBSIELLA SEPSIS
     Dosage: 6 G, 1X/DAY
     Route: 042
     Dates: start: 20180601, end: 20180616
  2. COLIMICINA [COLISTIMETHATE SODIUM] [Suspect]
     Active Substance: COLISTIMETHATE SODIUM
     Indication: KLEBSIELLA SEPSIS
     Dosage: 18 MILLION IU, 1X/DAY
     Route: 042
     Dates: start: 20180601, end: 20180616
  3. URBASON SOLUBILE [Concomitant]
     Active Substance: METHYLPREDNISOLONE SODIUM SUCCINATE
     Dosage: UNK
  4. ENOXAPARIN [Concomitant]
     Active Substance: ENOXAPARIN
     Dosage: UNK
  5. TIGECYCLINE. [Concomitant]
     Active Substance: TIGECYCLINE
     Dosage: 100 MG, UNK
     Route: 042

REACTIONS (3)
  - Acute kidney injury [Unknown]
  - Bradypnoea [Unknown]
  - Dyspnoea [Unknown]

NARRATIVE: CASE EVENT DATE: 20180616
